FAERS Safety Report 7668707-0 (Version None)
Quarter: 2011Q3

REPORT INFORMATION
  Report Type: 
  Country: None (occurrence: None)
  Receive Date: 20110808
  Receipt Date: 20110804
  Transmission Date: 20111222
  Serious: Yes (Hospitalization, Other)
  Sender: FDA-Public Use
  Company Number: US-PFIZER INC-2010006425

PATIENT
  Sex: Female

DRUGS (3)
  1. GLUCOVANCE [Concomitant]
     Indication: DIABETES MELLITUS
     Dosage: 5/500 MG
     Dates: start: 20050101, end: 20100701
  2. AVAPRO [Concomitant]
     Indication: BLOOD PRESSURE
     Dosage: 300 MG, UNK
     Dates: start: 20020101, end: 20100722
  3. CHANTIX [Suspect]
     Indication: SMOKING CESSATION THERAPY
     Dosage: 1 MG, UNK
     Dates: start: 20081101, end: 20090301

REACTIONS (5)
  - MAJOR DEPRESSION [None]
  - ABNORMAL BEHAVIOUR [None]
  - SCAR [None]
  - SUICIDE ATTEMPT [None]
  - INTENTIONAL OVERDOSE [None]
